FAERS Safety Report 8866011 (Version 1)
Quarter: 2012Q4

REPORT INFORMATION
  Report Type: 
  Country: US (occurrence: US)
  Receive Date: 20121025
  Receipt Date: 20121025
  Transmission Date: 20130627
  Serious: No
  Sender: FDA-Public Use
  Company Number: US-ABBOTT-12P-163-0967886-00

PATIENT
  Age: 39 None
  Sex: Female

DRUGS (1)
  1. LUPRON DEPOT 3.75 MG [Suspect]
     Indication: ENDOMETRIOSIS
     Dates: start: 201112, end: 2012

REACTIONS (10)
  - Menorrhagia [Unknown]
  - Ovarian cyst [Unknown]
  - Ovarian cyst [Unknown]
  - Vaginal haemorrhage [Unknown]
  - Vaginal haemorrhage [Unknown]
  - Vaginal haemorrhage [Unknown]
  - Menstrual disorder [Unknown]
  - Ovarian cyst [Unknown]
  - Metrorrhagia [Unknown]
  - Drug ineffective [Unknown]
